FAERS Safety Report 23388292 (Version 1)
Quarter: 2024Q1

REPORT INFORMATION
  Report Type: Spontaneous
  Country: ES (occurrence: ES)
  Receive Date: 20240110
  Receipt Date: 20240110
  Transmission Date: 20240410
  Serious: Yes (Other)
  Sender: FDA-Public Use
  Company Number: ES-PFM-2024-00061

PATIENT

DRUGS (7)
  1. PROPRANOLOL [Suspect]
     Active Substance: PROPRANOLOL HYDROCHLORIDE
     Indication: Endocrine ophthalmopathy
     Dosage: 10 MG EVERY 8 H
     Route: 065
  2. PROPRANOLOL [Suspect]
     Active Substance: PROPRANOLOL HYDROCHLORIDE
     Indication: Off label use
  3. METHIMAZOLE [Suspect]
     Active Substance: METHIMAZOLE
     Indication: Endocrine ophthalmopathy
     Dosage: 25 MG/DAY
     Route: 065
  4. METHIMAZOLE [Suspect]
     Active Substance: METHIMAZOLE
     Dosage: 5- 10 MG/DAY
     Route: 065
  5. SELENIUM [Suspect]
     Active Substance: SELENIUM
     Indication: Endocrine ophthalmopathy
     Dosage: 200 ?/DAY
     Route: 065
  6. LEVOTHYROXINE [Suspect]
     Active Substance: LEVOTHYROXINE
     Indication: Endocrine ophthalmopathy
     Dosage: 200 ?G/DAY (2.04 ?G/KG/DAY)
     Route: 065
  7. LEVOTHYROXINE [Suspect]
     Active Substance: LEVOTHYROXINE
     Dosage: 225 ?G/DAY (2.25?G/KG/DAY)
     Route: 065

REACTIONS (6)
  - Endocrine ophthalmopathy [Unknown]
  - Generalised oedema [Unknown]
  - Product use in unapproved indication [Unknown]
  - Product use issue [Unknown]
  - Product use issue [Unknown]
  - Off label use [Unknown]
